FAERS Safety Report 16106411 (Version 1)
Quarter: 2019Q1

REPORT INFORMATION
  Report Type: Report from Study
  Country: CA (occurrence: CA)
  Receive Date: 20190322
  Receipt Date: 20190322
  Transmission Date: 20190418
  Serious: Yes (Death)
  Sender: FDA-Public Use
  Company Number: CA-ACTELION-A-NJ2019-184451

PATIENT
  Age: 60 Year
  Sex: Female

DRUGS (12)
  1. CIPRALEX [Concomitant]
     Active Substance: ESCITALOPRAM OXALATE
  2. IRON [Concomitant]
     Active Substance: IRON
  3. REVATIO [Concomitant]
     Active Substance: SILDENAFIL CITRATE
  4. GABAPENTIN. [Concomitant]
     Active Substance: GABAPENTIN
  5. DIAMICRON [Concomitant]
     Active Substance: GLICLAZIDE
  6. SPIRIVA [Concomitant]
     Active Substance: TIOTROPIUM BROMIDE MONOHYDRATE
  7. VITAMIN D [Concomitant]
     Active Substance: CHOLECALCIFEROL
  8. TRACLEER [Suspect]
     Active Substance: BOSENTAN
     Indication: PULMONARY ARTERIAL HYPERTENSION
     Dosage: 62.5 MG, QD
     Route: 048
     Dates: start: 20181218, end: 20190305
  9. DIGOXIN. [Concomitant]
     Active Substance: DIGOXIN
  10. LASIX [Concomitant]
     Active Substance: FUROSEMIDE
  11. SYMBICORT [Concomitant]
     Active Substance: BUDESONIDE\FORMOTEROL FUMARATE DIHYDRATE
  12. WARFARIN [Concomitant]
     Active Substance: WARFARIN

REACTIONS (3)
  - Vision blurred [Not Recovered/Not Resolved]
  - Furuncle [Recovered/Resolved]
  - Death [Fatal]

NARRATIVE: CASE EVENT DATE: 20181228
